FAERS Safety Report 5176949-1 (Version None)
Quarter: 2006Q4

REPORT INFORMATION
  Report Type: 
  Country: None (occurrence: None)
  Receive Date: 20061218
  Receipt Date: 20061129
  Transmission Date: 20070319
  Serious: Yes (Death, Hospitalization)
  Sender: FDA-Public Use
  Company Number: US-AVENTIS-200622311GDDC

PATIENT
  Age: 59 Year
  Sex: Male
  Weight: 60 kg

DRUGS (3)
  1. DOCETAXEL [Suspect]
     Indication: SQUAMOUS CELL CARCINOMA
     Route: 042
     Dates: start: 20061115, end: 20061115
  2. CODE UNBROKEN [Concomitant]
     Indication: SQUAMOUS CELL CARCINOMA
     Route: 048
     Dates: start: 20061101, end: 20061127
  3. DUONEB [Concomitant]
     Dosage: DOSE: UNK

REACTIONS (9)
  - BRONCHIAL HAEMORRHAGE [None]
  - DYSPNOEA [None]
  - HAEMOPTYSIS [None]
  - HYPOXIA [None]
  - PNEUMONIA [None]
  - PNEUMONITIS [None]
  - PRODUCTIVE COUGH [None]
  - RESPIRATORY DISTRESS [None]
  - RESPIRATORY FAILURE [None]
